FAERS Safety Report 4865353-9 (Version None)
Quarter: 2005Q4

REPORT INFORMATION
  Report Type: 
  Country: None (occurrence: None)
  Receive Date: 20051223
  Receipt Date: 20051216
  Transmission Date: 20060501
  Serious: Yes (Hospitalization)
  Sender: FDA-Public Use
  Company Number: ZA-ABBOTT-05P-143-0319957-00

PATIENT
  Sex: Female

DRUGS (5)
  1. EPILIM INJECTION [Suspect]
     Indication: EPILEPSY
     Route: 061
     Dates: start: 20050209, end: 20050420
  2. ASM 981 VS VEHICLE [Suspect]
     Indication: DERMATITIS ATOPIC
     Route: 061
     Dates: start: 20041019
  3. HYDROCORTISONE [Concomitant]
     Indication: DRUG USE FOR UNKNOWN INDICATION
  4. METHYLPREDNISOLONE ACEPONATE [Concomitant]
     Indication: DRUG USE FOR UNKNOWN INDICATION
  5. PHENOBARBITAL [Concomitant]
     Indication: DRUG USE FOR UNKNOWN INDICATION
     Dates: end: 20050420

REACTIONS (6)
  - DERMATITIS ATOPIC [None]
  - HEPATIC ENZYME INCREASED [None]
  - HEPATITIS A [None]
  - JAUNDICE [None]
  - PYREXIA [None]
  - RESPIRATORY TRACT INFECTION [None]
